FAERS Safety Report 22338482 (Version 6)
Quarter: 2024Q2

REPORT INFORMATION
  Report Type: Report from Study
  Country: US (occurrence: US)
  Receive Date: 20230518
  Receipt Date: 20240611
  Transmission Date: 20240716
  Serious: Yes (Hospitalization, Other)
  Sender: FDA-Public Use
  Company Number: US-JAZZ PHARMACEUTICALS-2022-US-013028

PATIENT
  Age: 61 Year
  Sex: Female

DRUGS (15)
  1. XYWAV [Suspect]
     Active Substance: CALCIUM OXYBATE\MAGNESIUM OXYBATE\POTASSIUM OXYBATE\SODIUM OXYBATE
     Indication: Narcolepsy
     Dosage: 4.5 MILLIGRAM, BID
  2. XYWAV [Suspect]
     Active Substance: CALCIUM OXYBATE\MAGNESIUM OXYBATE\POTASSIUM OXYBATE\SODIUM OXYBATE
     Indication: Cataplexy
     Dosage: 3 GRAM, BID
  3. XYWAV [Suspect]
     Active Substance: CALCIUM OXYBATE\MAGNESIUM OXYBATE\POTASSIUM OXYBATE\SODIUM OXYBATE
     Indication: Somnolence
  4. GABAPENTIN [Suspect]
     Active Substance: GABAPENTIN
     Indication: Hypotonia
     Dosage: UNK
     Dates: start: 20230705
  5. GABAPENTIN [Suspect]
     Active Substance: GABAPENTIN
     Indication: Sciatica
  6. FLUOXETINE HYDROCHLORIDE [Concomitant]
     Active Substance: FLUOXETINE HYDROCHLORIDE
     Indication: Product used for unknown indication
     Dosage: 0010
     Dates: start: 20140623
  7. ADVIL [Concomitant]
     Active Substance: IBUPROFEN\IBUPROFEN SODIUM
     Indication: Product used for unknown indication
     Dosage: 0010
     Dates: start: 20140626
  8. VITAMINS [Concomitant]
     Active Substance: VITAMINS
     Indication: Product used for unknown indication
     Dosage: 0010
     Dates: start: 20140626
  9. METHYLPHENIDATE [Concomitant]
     Active Substance: METHYLPHENIDATE
     Indication: Product used for unknown indication
     Dosage: UNK
     Dates: start: 20170928
  10. METHYLPHENIDATE [Concomitant]
     Active Substance: METHYLPHENIDATE
     Dosage: UNK (10 MG TABLET)
     Dates: start: 20231231
  11. TYLENOL [Concomitant]
     Active Substance: ACETAMINOPHEN
     Indication: Product used for unknown indication
     Dosage: UNK
     Dates: start: 20210204
  12. LISINOPRIL [Concomitant]
     Active Substance: LISINOPRIL
     Indication: Product used for unknown indication
     Dosage: UNK
  13. ALEVE [Concomitant]
     Active Substance: NAPROXEN SODIUM
     Indication: Product used for unknown indication
     Dosage: UNK
     Dates: start: 20231229
  14. PROZAC [Concomitant]
     Active Substance: FLUOXETINE HYDROCHLORIDE
     Indication: Product used for unknown indication
  15. HYDROCHLOROTHIAZIDE\LISINOPRIL [Concomitant]
     Active Substance: HYDROCHLOROTHIAZIDE\LISINOPRIL
     Indication: Blood pressure measurement
     Dosage: UNK 10-12.5 MG
     Dates: start: 20231205

REACTIONS (15)
  - Spinal stenosis [Unknown]
  - Pain in extremity [Unknown]
  - Arthritis [Unknown]
  - Intervertebral disc disorder [Unknown]
  - Sciatica [Unknown]
  - Adverse drug reaction [Unknown]
  - Sleep terror [Unknown]
  - Drug interaction [Unknown]
  - Aggression [Unknown]
  - Nasopharyngitis [Unknown]
  - Nausea [Unknown]
  - Vomiting [Unknown]
  - Carpal tunnel syndrome [Unknown]
  - Inappropriate schedule of product administration [Unknown]
  - Product dose omission issue [Unknown]

NARRATIVE: CASE EVENT DATE: 20230101
